FAERS Safety Report 9017329 (Version 1)
Quarter: 2013Q1

REPORT INFORMATION
  Report Type: Spontaneous
  Country: FR (occurrence: FR)
  Receive Date: 20130117
  Receipt Date: 20130117
  Transmission Date: 20140127
  Serious: Yes (Hospitalization)
  Sender: FDA-Public Use
  Company Number: FR-ALLERGAN-1300674US

PATIENT
  Age: 86 Year
  Sex: Female

DRUGS (2)
  1. TROSPIUM CHLORIDE [Suspect]
     Indication: URINARY INCONTINENCE
     Dosage: 20 MG, UNK
     Route: 048
     Dates: start: 20120731, end: 20120824
  2. SERTRALINE HYDROCHLORIDE [Suspect]
     Indication: DEPRESSION
     Dosage: 50 MG, UNK
     Route: 048
     Dates: start: 20120816, end: 20120824

REACTIONS (3)
  - Disturbance in attention [Recovered/Resolved]
  - Fall [Recovering/Resolving]
  - Somnolence [Unknown]
